FAERS Safety Report 9879178 (Version 1)
Quarter: 2014Q1

REPORT INFORMATION
  Report Type: Spontaneous
  Country: US (occurrence: US)
  Receive Date: 20140206
  Receipt Date: 20140206
  Transmission Date: 20141002
  Serious: Yes (Other)
  Sender: FDA-Public Use
  Company Number: PHHY2014US014252

PATIENT
  Age: 56 Year
  Sex: Female

DRUGS (10)
  1. XOLAIR [Suspect]
     Indication: ASTHMA
     Dosage: 150 MG, EVERY FOUR WEEKS
     Route: 058
  2. NAPROXEN [Suspect]
     Dosage: UNK
  3. HYDROCHLOROTHIAZIDE [Concomitant]
     Dosage: 12.5 MG, UNK
  4. FLEXERIL [Concomitant]
     Dosage: 10 MG, UNK
  5. CYMBALTA [Concomitant]
     Dosage: 60 MG, UNK
  6. CYMBALTA [Concomitant]
     Dosage: 10 UNK, UNK
  7. LOPID [Concomitant]
     Dosage: 600 MG, UNK
  8. ADVAIR DISKUS [Concomitant]
     Dosage: UNK, 250- 50 MG
  9. OMEPRAZOLE [Concomitant]
     Dosage: 20 MG, UNK
  10. DILTIAZEM [Concomitant]
     Dosage: 240 MG, UNK

REACTIONS (2)
  - Knee arthroplasty [Unknown]
  - Drug hypersensitivity [Unknown]
